FAERS Safety Report 7805307 (Version 2)
Quarter: 2012Q4

REPORT INFORMATION
  Report Type: 
  Country: US (occurrence: US)
  Receive Date: 20110209
  Receipt Date: 20120913
  Transmission Date: 20130627
  Serious: Yes (Hospitalization, Other)
  Sender: FDA-Public Use
  Company Number: US-BAYER-2011-012023

PATIENT
  Age: 15 Year
  Sex: Female
  Weight: 56.69 kg

DRUGS (8)
  1. YAZ [Suspect]
     Dosage: UNK
     Dates: start: 200901
  2. MEPERIDINE [Concomitant]
     Indication: PAIN
     Dosage: 50 mg, one to two tablets every 4 hours as needed
     Route: 048
  3. HALFLYTELY - BISACODYL BOWEL [Concomitant]
  4. TRAMADOL HYDROCHLORIDE [Concomitant]
     Indication: PAIN
     Dosage: 50 mg, one every six hours as needed
     Route: 048
  5. FLEXERIL [Concomitant]
     Dosage: UNK UNK, PRN
  6. LEVSIN [Concomitant]
  7. PREVACID [Concomitant]
  8. DEMEROL [Concomitant]
     Dosage: UNK UNK, PRN

REACTIONS (10)
  - Cholecystectomy [None]
  - Biliary dyskinesia [None]
  - Anxiety [None]
  - Depression [None]
  - Scar [None]
  - Abdominal distension [None]
  - Flatulence [None]
  - Dyspepsia [None]
  - Constipation [None]
  - Diarrhoea [None]
